FAERS Safety Report 11088098 (Version 1)
Quarter: 2015Q2

REPORT INFORMATION
  Report Type: Spontaneous
  Country: US (occurrence: None)
  Receive Date: 20150501
  Receipt Date: 20150501
  Transmission Date: 20150821
  Serious: No
  Sender: FDA-Public Use
  Company Number: None

PATIENT
  Age: 45 Year
  Sex: Female
  Weight: 58.06 kg

DRUGS (2)
  1. CELEBREX [Suspect]
     Active Substance: CELECOXIB
     Indication: ARTHRITIS
     Dosage: 1 PILL
     Route: 048
     Dates: start: 20150416, end: 20150430
  2. ONE A DAY MULTI VITAMIN [Concomitant]

REACTIONS (6)
  - Impaired work ability [None]
  - Therapeutic response decreased [None]
  - Disorientation [None]
  - Dizziness [None]
  - Fatigue [None]
  - Disturbance in attention [None]

NARRATIVE: CASE EVENT DATE: 20150430
